FAERS Safety Report 4939124-9 (Version None)
Quarter: 2006Q1

REPORT INFORMATION
  Report Type: 
  Country: None (occurrence: None)
  Receive Date: 20060306
  Receipt Date: 20060212
  Transmission Date: 20060701
  Serious: Yes (Hospitalization, Other)
  Sender: FDA-Public Use
  Company Number: 2006015056

PATIENT
  Age: 67 Year
  Sex: Female
  Weight: 54 kg

DRUGS (8)
  1. CELEBREX [Suspect]
     Indication: ANKYLOSING SPONDYLITIS
     Dosage: 200-400 MG (200 MG, 1 TO INTAKES PER DAY), ORAL
     Route: 048
     Dates: start: 20020101, end: 20050527
  2. CLIMENE (CYPROTERONE ACETATE, ESTRADIOL VALERATE) [Suspect]
     Indication: MENOPAUSE
     Dosage: ORAL
     Route: 048
     Dates: start: 19960101, end: 20040306
  3. ACEBUTOLOL [Concomitant]
  4. TRAMADOL HCL [Concomitant]
  5. TERBINAFINE HCL [Concomitant]
  6. CICLOPIROX (CICLOPIROX) [Concomitant]
  7. MIANSERIN (MIANSERIN) [Concomitant]
  8. LORAZEPAM [Concomitant]

REACTIONS (9)
  - ANKYLOSING SPONDYLITIS [None]
  - CEREBROVASCULAR ACCIDENT [None]
  - CORONARY ARTERY INSUFFICIENCY [None]
  - HYPERTENSION [None]
  - MICROANGIOPATHY [None]
  - NEOPLASM MALIGNANT [None]
  - ONYCHOMYCOSIS [None]
  - RENAL FAILURE [None]
  - SLEEP DISORDER [None]
